FAERS Safety Report 5551520-8 (Version None)
Quarter: 2007Q4

REPORT INFORMATION
  Report Type: 
  Country: None (occurrence: None)
  Receive Date: 20071212
  Receipt Date: 20071203
  Transmission Date: 20080405
  Serious: Yes (Hospitalization, Other)
  Sender: FDA-Public Use
  Company Number: US-PFIZER INC-2006101898

PATIENT
  Sex: Male
  Weight: 68 kg

DRUGS (11)
  1. CELEBREX [Suspect]
     Indication: OSTEOARTHRITIS
  2. CELEBREX [Suspect]
     Indication: PAIN
  3. VIOXX [Suspect]
     Indication: OSTEOARTHRITIS
     Dates: start: 20010901, end: 20030718
  4. VIOXX [Suspect]
     Indication: PAIN
  5. ACETYLSALICYLIC ACID SRT [Concomitant]
     Indication: CEREBROVASCULAR ACCIDENT PROPHYLAXIS
     Dates: start: 20020101, end: 20070216
  6. TOPROL-XL [Concomitant]
     Indication: CARDIAC DISORDER
     Dates: start: 20020815, end: 20070216
  7. NORVASC [Concomitant]
     Indication: HYPERTENSION
     Dates: start: 20000810, end: 20070216
  8. FUROSEMIDE [Concomitant]
     Indication: OEDEMA PERIPHERAL
     Dates: start: 20010403, end: 20070216
  9. CATAPRES [Concomitant]
     Indication: HYPERTENSION
     Dates: start: 20030609, end: 20070216
  10. PRAVACHOL [Concomitant]
     Indication: BLOOD CHOLESTEROL INCREASED
     Dates: start: 20000913, end: 20070216
  11. POTASSIUM CHLORIDE [Concomitant]
     Indication: HYPOKALAEMIA
     Dates: start: 20030623, end: 20070216

REACTIONS (3)
  - CEREBROVASCULAR ACCIDENT [None]
  - PULMONARY EMBOLISM [None]
  - THROMBOSIS [None]
